FAERS Safety Report 13289816 (Version 6)
Quarter: 2017Q3

REPORT INFORMATION
  Report Type: Spontaneous
  Country: US (occurrence: US)
  Receive Date: 20170303
  Receipt Date: 20170731
  Transmission Date: 20171127
  Serious: No
  Sender: FDA-Public Use
  Company Number: PHEH2017US006440

PATIENT
  Sex: Female
  Weight: 72.56 kg

DRUGS (3)
  1. ONDANSETRON [Suspect]
     Active Substance: ONDANSETRON
     Indication: VOMITING IN PREGNANCY
     Dosage: 4 MG, UNK
     Route: 065
     Dates: start: 20140501, end: 20150401
  2. ONDANSETRON [Suspect]
     Active Substance: ONDANSETRON
     Indication: PRODUCT USED FOR UNKNOWN INDICATION
     Route: 048
  3. ZOFRAN ODT [Suspect]
     Active Substance: ONDANSETRON HYDROCHLORIDE
     Indication: PRODUCT USED FOR UNKNOWN INDICATION
     Dosage: 8 MG, Q8H
     Route: 048
     Dates: end: 20140530

REACTIONS (13)
  - Vitreous floaters [Unknown]
  - Cerumen impaction [Unknown]
  - Contusion [Unknown]
  - Vitreous opacities [Unknown]
  - Syncope [Unknown]
  - Emotional distress [Unknown]
  - Headache [Unknown]
  - Product use issue [Unknown]
  - Maternal exposure during pregnancy [Unknown]
  - Injury [Unknown]
  - Cardiac murmur [Unknown]
  - Vaginal infection [Unknown]
  - Rash [Unknown]
